FAERS Safety Report 9967609 (Version 1)
Quarter: 2014Q1

REPORT INFORMATION
  Report Type: Report from Study
  Country: US (occurrence: US)
  Receive Date: 20140305
  Receipt Date: 20140305
  Transmission Date: 20141002
  Serious: No
  Sender: FDA-Public Use
  Company Number: US-ABBVIE-13P-163-1139193-00

PATIENT
  Age: 61 Year
  Sex: Female

DRUGS (5)
  1. HUMIRA [Suspect]
     Indication: RHEUMATOID ARTHRITIS
     Dates: start: 20110513
  2. MAXALT [Concomitant]
     Indication: MIGRAINE
  3. VITAMIN D [Concomitant]
     Indication: VITAMIN SUPPLEMENTATION
     Dosage: DAILY
  4. MULTIVITAMIN [Concomitant]
     Indication: VITAMIN SUPPLEMENTATION
     Dosage: DAILY
  5. CALCIUM [Concomitant]
     Indication: VITAMIN SUPPLEMENTATION

REACTIONS (6)
  - Drug dose omission [Recovered/Resolved]
  - Photosensitivity reaction [Recovered/Resolved]
  - Arthralgia [Recovered/Resolved]
  - Swelling [Recovered/Resolved]
  - Choking sensation [Recovered/Resolved]
  - Nausea [Recovered/Resolved]
